FAERS Safety Report 7155155-5 (Version None)
Quarter: 2010Q4

REPORT INFORMATION
  Report Type: 
  Country: None (occurrence: None)
  Receive Date: 20101214
  Receipt Date: 20091120
  Transmission Date: 20110411
  Serious: No
  Sender: FDA-Public Use
  Company Number: US-AMGEN-TCS375995

PATIENT

DRUGS (2)
  1. ENBREL [Suspect]
     Indication: OSTEOARTHRITIS
     Dosage: 50 MG, QWK
     Route: 058
     Dates: start: 20090908, end: 20091117
  2. METHOTREXATE [Concomitant]
     Dosage: 7 MG, QWK
     Route: 048

REACTIONS (5)
  - DIZZINESS [None]
  - INJECTION SITE ERYTHEMA [None]
  - INJECTION SITE PAIN [None]
  - NAUSEA [None]
  - TONGUE BLISTERING [None]
